FAERS Safety Report 8822680 (Version 2)
Quarter: 2012Q4

REPORT INFORMATION
  Report Type: 
  Country: IT (occurrence: IT)
  Receive Date: 20121003
  Receipt Date: 20121008
  Transmission Date: 20130627
  Serious: Yes (Hospitalization, Other)
  Sender: FDA-Public Use
  Company Number: IT-BRISTOL-MYERS SQUIBB COMPANY-16991580

PATIENT
  Age: 82 Year
  Sex: Female

DRUGS (5)
  1. COUMADIN TABS 5 MG [Suspect]
     Indication: CARDIAC VALVE PROSTHESIS USER
     Dates: start: 19920101, end: 20120701
  2. MICARDIS [Concomitant]
     Dosage: tab
  3. LASIX [Concomitant]
  4. LOBIVON [Concomitant]
     Dosage: Tab
  5. RESPICUR [Concomitant]
     Dosage: Capsule

REACTIONS (3)
  - International normalised ratio increased [Recovering/Resolving]
  - Anaemia [Recovering/Resolving]
  - Femur fracture [Unknown]
